FAERS Safety Report 24701386 (Version 1)
Quarter: 2024Q4

REPORT INFORMATION
  Report Type: Spontaneous
  Country: US (occurrence: None)
  Receive Date: 20241205
  Receipt Date: 20241205
  Transmission Date: 20250115
  Serious: No
  Sender: Public
  Company Number: None

PATIENT
  Age: 74 Year
  Sex: Female
  Weight: 60.33 kg

DRUGS (1)
  1. SEMAGLUTIDE [Suspect]
     Active Substance: SEMAGLUTIDE
     Indication: Weight decreased
     Dosage: FREQUENCY : WEEKLY;?
     Route: 042
     Dates: start: 20241113

REACTIONS (9)
  - Product label confusion [None]
  - Product label confusion [None]
  - Incorrect dose administered [None]
  - Vomiting [None]
  - Weight decreased [None]
  - Nausea [None]
  - Dehydration [None]
  - Device use confusion [None]
  - Product communication issue [None]

NARRATIVE: CASE EVENT DATE: 20241113
